FAERS Safety Report 17820331 (Version 1)
Quarter: 2020Q2

REPORT INFORMATION
  Report Type: Spontaneous
  Country: RU (occurrence: RU)
  Receive Date: 20200525
  Receipt Date: 20200525
  Transmission Date: 20200714
  Serious: Yes (Other)
  Sender: FDA-Public Use
  Company Number: RU-ROCHE-2602633

PATIENT
  Age: 52 Year
  Sex: Female

DRUGS (7)
  1. DOLUTEGRAVIR [Concomitant]
     Active Substance: DOLUTEGRAVIR
  2. VEMURAFENIB. [Suspect]
     Active Substance: VEMURAFENIB
     Indication: METASTATIC MALIGNANT MELANOMA
     Route: 065
     Dates: start: 20190902
  3. COBIMETINIB. [Suspect]
     Active Substance: COBIMETINIB
     Route: 065
     Dates: start: 20200424
  4. TENOFOVIR [Concomitant]
     Active Substance: TENOFOVIR
  5. VEMURAFENIB. [Suspect]
     Active Substance: VEMURAFENIB
     Route: 065
     Dates: start: 20200424
  6. LAMIVUDINE. [Concomitant]
     Active Substance: LAMIVUDINE
  7. COBIMETINIB. [Suspect]
     Active Substance: COBIMETINIB
     Indication: METASTATIC MALIGNANT MELANOMA
     Route: 065
     Dates: start: 20190902

REACTIONS (9)
  - Pigmentation disorder [Unknown]
  - Pyrexia [Unknown]
  - Angioedema [Recovered/Resolved]
  - Pneumonia [Unknown]
  - Skin fissures [Unknown]
  - Hypoaesthesia [Unknown]
  - Purpura [Unknown]
  - Rash [Recovered/Resolved]
  - Peripheral swelling [Unknown]

NARRATIVE: CASE EVENT DATE: 20191001
